FAERS Safety Report 8879848 (Version 2)
Quarter: 2013Q1

REPORT INFORMATION
  Report Type: Spontaneous
  Country: US (occurrence: US)
  Receive Date: 20121101
  Receipt Date: 20130304
  Transmission Date: 20140127
  Serious: Yes (Other)
  Sender: FDA-Public Use
  Company Number: US-BAYER-2012-112854

PATIENT
  Age: 30 Year
  Sex: Female
  Weight: 53.06 kg

DRUGS (3)
  1. GADAVIST [Suspect]
     Indication: NUCLEAR MAGNETIC RESONANCE IMAGING
  2. GADAVIST [Suspect]
     Indication: MULTIPLE SCLEROSIS
  3. TYSABRI [Concomitant]
     Indication: MULTIPLE SCLEROSIS

REACTIONS (2)
  - Myelofibrosis [None]
  - Aplasia pure red cell [None]
